FAERS Safety Report 5636938-7 (Version None)
Quarter: 2008Q1

REPORT INFORMATION
  Report Type: 
  Country: None (occurrence: None)
  Receive Date: 20080225
  Receipt Date: 20070110
  Transmission Date: 20080703
  Serious: No
  Sender: FDA-Public Use
  Company Number: US-BRISTOL-MYERS SQUIBB COMPANY-13638325

PATIENT
  Age: 55 Year
  Sex: Female
  Weight: 88 kg

DRUGS (7)
  1. GLUCOPHAGE [Suspect]
     Indication: DIABETES MELLITUS
     Dates: start: 20060101, end: 20061001
  2. BYETTA [Suspect]
     Indication: INSULIN RESISTANCE
  3. SPORANOX [Suspect]
     Indication: BACTERIAL INFECTION
     Dates: start: 20061001
  4. GLIPIZIDE [Concomitant]
     Dates: start: 20061101
  5. THYROID TAB [Concomitant]
  6. LEVAQUIN [Concomitant]
     Dates: start: 20061214
  7. VANCOMYCIN [Concomitant]

REACTIONS (13)
  - BLOOD GLUCOSE DECREASED [None]
  - BLOOD GLUCOSE INCREASED [None]
  - BODY TEMPERATURE INCREASED [None]
  - DRUG INTERACTION [None]
  - DYSPNOEA [None]
  - EXERCISE TOLERANCE DECREASED [None]
  - FEELING ABNORMAL [None]
  - HEADACHE [None]
  - NAUSEA [None]
  - PITTING OEDEMA [None]
  - SINUSITIS [None]
  - STAPHYLOCOCCAL INFECTION [None]
  - WEIGHT DECREASED [None]
